FAERS Safety Report 23350302 (Version 1)
Quarter: 2023Q4

REPORT INFORMATION
  Report Type: Spontaneous
  Country: US (occurrence: US)
  Receive Date: 20231229
  Receipt Date: 20231229
  Transmission Date: 20240110
  Serious: Yes (Death, Other)
  Sender: FDA-Public Use
  Company Number: US-002147023-NVSC2023US275527

PATIENT
  Age: 57 Year
  Sex: Female

DRUGS (1)
  1. PROMACTA [Suspect]
     Active Substance: ELTROMBOPAG OLAMINE
     Indication: Immune thrombocytopenia
     Dosage: 150 MG, QD
     Route: 048

REACTIONS (4)
  - Immune system disorder [Fatal]
  - Pneumonia [Fatal]
  - Nasopharyngitis [Fatal]
  - Drug resistance [Fatal]

NARRATIVE: CASE EVENT DATE: 20231225
